FAERS Safety Report 9080692 (Version 1)
Quarter: 2013Q1

REPORT INFORMATION
  Report Type: Spontaneous
  Country: US (occurrence: US)
  Receive Date: 20130130
  Receipt Date: 20130130
  Transmission Date: 20140127
  Serious: No
  Sender: FDA-Public Use
  Company Number: US-ABBOTT-12P-163-0965490-00

PATIENT
  Sex: Male
  Weight: 54.93 kg

DRUGS (4)
  1. HUMIRA 40 MG/ 0.8 ML PRE-FILLED SYRINGE [Suspect]
     Indication: CROHN^S DISEASE
     Route: 058
     Dates: start: 20120725
  2. ZOFRAN [Concomitant]
     Indication: NAUSEA
  3. TRAMADOL [Concomitant]
     Indication: PAIN
  4. VALIUM [Concomitant]
     Indication: ANXIETY

REACTIONS (2)
  - Dyspnoea [Not Recovered/Not Resolved]
  - Swelling face [Recovering/Resolving]
